FAERS Safety Report 7040836-4 (Version None)
Quarter: 2010Q3

REPORT INFORMATION
  Report Type: 
  Country: None (occurrence: None)
  Receive Date: 20100929
  Receipt Date: 20100603
  Transmission Date: 20110219
  Serious: No
  Sender: FDA-Public Use
  Company Number: US-WYE-H15172510

PATIENT
  Age: 58 Year
  Sex: Female
  Weight: 49.03 kg

DRUGS (4)
  1. PRISTIQ [Suspect]
     Indication: DEPRESSION
     Dosage: 50 MG 1X PER 1 DAY
     Dates: start: 20100326
  2. NEXIUM [Concomitant]
  3. XANAX [Concomitant]
  4. RESTORIL [Concomitant]

REACTIONS (9)
  - ANXIETY [None]
  - BACK PAIN [None]
  - CONDITION AGGRAVATED [None]
  - DECREASED APPETITE [None]
  - DRUG INEFFECTIVE [None]
  - INSOMNIA [None]
  - MUSCULOSKELETAL PAIN [None]
  - TENSION [None]
  - WEIGHT DECREASED [None]
